FAERS Safety Report 13349205 (Version 1)
Quarter: 2017Q1

REPORT INFORMATION
  Report Type: Spontaneous
  Country: US (occurrence: US)
  Receive Date: 20170317
  Receipt Date: 20170317
  Transmission Date: 20170428
  Serious: Yes (Life-Threatening)
  Sender: FDA-Public Use
  Company Number: None

PATIENT
  Age: 43 Year
  Sex: Male
  Weight: 122.58 kg

DRUGS (8)
  1. MEGAMEN GNC [Concomitant]
  2. POTASSIUM ION LIQUID [Concomitant]
  3. RISPERDAL CONSTA [Suspect]
     Active Substance: RISPERIDONE
  4. TOPAMAX [Concomitant]
     Active Substance: TOPIRAMATE
  5. RESTEROL [Concomitant]
  6. ANTIEPILEPTIC [Concomitant]
     Active Substance: UNSPECIFIED INGREDIENT
  7. ANTI ANXIETY MEDICATION [Concomitant]
  8. MULTIVITAMIN [Concomitant]
     Active Substance: VITAMINS

REACTIONS (4)
  - Panic reaction [None]
  - Hypersensitivity [None]
  - Epilepsy [None]
  - Paraesthesia [None]

NARRATIVE: CASE EVENT DATE: 20161125
